FAERS Safety Report 5681018-8 (Version None)
Quarter: 2008Q1

REPORT INFORMATION
  Report Type: 
  Country: None (occurrence: None)
  Receive Date: 20080325
  Receipt Date: 20080310
  Transmission Date: 20080703
  Serious: Yes (Other)
  Sender: FDA-Public Use
  Company Number: SPV1-2008-00545

PATIENT
  Age: 7 Year
  Sex: Male
  Weight: 29.5 kg

DRUGS (3)
  1. VYVANSE [Suspect]
     Indication: ATTENTION DEFICIT/HYPERACTIVITY DISORDER
     Dosage: 30 MG, 1X/DAY:QD, ORAL
     Route: 048
     Dates: start: 20080306, end: 20080307
  2. ZYRTEC [Concomitant]
  3. ADVAIR DISKUS 100/50 [Concomitant]

REACTIONS (12)
  - AGITATION [None]
  - CRYING [None]
  - DIZZINESS [None]
  - DYSKINESIA [None]
  - DYSPHASIA [None]
  - DYSPHONIA [None]
  - DYSPNOEA [None]
  - FEELING ABNORMAL [None]
  - HEART RATE INCREASED [None]
  - MUSCULOSKELETAL STIFFNESS [None]
  - OPISTHOTONUS [None]
  - TIC [None]
